FAERS Safety Report 7368832-8 (Version None)
Quarter: 2011Q1

REPORT INFORMATION
  Report Type: 
  Country: None (occurrence: None)
  Receive Date: 20110304
  Receipt Date: 20101029
  Transmission Date: 20110831
  Serious: Yes (Death, Life-Threatening, Hospitalization, Other)
  Sender: FDA-Public Use
  Company Number: CLOF-10476

PATIENT
  Age: 73 Year
  Sex: Male
  Weight: 81.2 kg

DRUGS (34)
  1. CARDIZEM [Suspect]
     Indication: PRODUCT USED FOR UNKNOWN INDICATION
     Dates: start: 20070313, end: 20070314
  2. SEVELAMER (SEVELAMER) [Concomitant]
  3. NYSTATIN [Concomitant]
  4. TRAZODONE HCL [Concomitant]
  5. CANCIDAS [Concomitant]
  6. VALTREX [Concomitant]
     Dates: start: 20070304
  7. VITAMIN K (MENADIONE) [Concomitant]
  8. METOPROLOL TARTRATE [Concomitant]
  9. PREVASTATIN [Concomitant]
  10. DIOVAN [Concomitant]
  11. HYFROCHLOROTHIAZIDE (HYDROCHLOROTHIAZIDE) [Concomitant]
  12. CARVEDILOL [Concomitant]
  13. MAGNESIUM SULFATE [Concomitant]
  14. LASIX [Concomitant]
  15. POTASSIUM CHLORIDE [Concomitant]
  16. ROCEPHIN [Concomitant]
  17. CEFTRIAXONE [Concomitant]
  18. BENADRYL [Concomitant]
  19. FLOMAX [Concomitant]
  20. ZOCOR [Concomitant]
  21. PRILOSEC [Concomitant]
  22. CYTARABINE [Suspect]
     Indication: MYELOID LEUKAEMIA
     Dosage: 2000 MG, QDX5, INTRAVENOUS
     Route: 042
     Dates: start: 20070310, end: 20070312
  23. CITALOPRAM (CITALOPRAM) [Concomitant]
  24. VORICONAZOLE [Concomitant]
  25. IBUTILIDE (IBUTILIDE) [Concomitant]
  26. CLOFARABINE [Suspect]
     Indication: MYELOID LEUKAEMIA
     Dosage: 80 MG, QDX5, INTRAVENOUS
     Route: 042
     Dates: start: 20070309, end: 20070312
  27. PSYLLIUM PACK [Concomitant]
  28. CELEXA [Concomitant]
  29. PROSCAR [Concomitant]
  30. FINASTERIDE [Concomitant]
  31. OMEPRAZOLE [Concomitant]
  32. VALSARTAN [Concomitant]
  33. HYDREA [Concomitant]
  34. NITROGLYCERIN [Concomitant]

REACTIONS (10)
  - SINUS BRADYCARDIA [None]
  - CARDIAC FAILURE CONGESTIVE [None]
  - TRICUSPID VALVE INCOMPETENCE [None]
  - VENTRICULAR HYPOKINESIA [None]
  - ATRIAL FIBRILLATION [None]
  - ELECTROCARDIOGRAM QT PROLONGED [None]
  - ABDOMINAL PAIN [None]
  - ENTEROCOCCUS TEST POSITIVE [None]
  - FEBRILE NEUTROPENIA [None]
  - CARDIAC ARREST [None]
